FAERS Safety Report 4578282-5 (Version None)
Quarter: 2005Q1

REPORT INFORMATION
  Report Type: 
  Country: None (occurrence: None)
  Receive Date: 20050211
  Receipt Date: 20050204
  Transmission Date: 20050727
  Serious: Yes (Hospitalization)
  Sender: FDA-Public Use
  Company Number: PHHO2005IT02338

PATIENT
  Age: 57 Year
  Sex: Male

DRUGS (1)
  1. CYCLOSPORINE [Suspect]
     Indication: RENAL TRANSPLANT
     Dosage: NOT REPORTED

REACTIONS (8)
  - ARTERIOVENOUS FISTULA OPERATION [None]
  - ARTERIOVENOUS FISTULA SITE COMPLICATION [None]
  - ATRIAL FIBRILLATION [None]
  - COMPLICATIONS OF TRANSPLANTED KIDNEY [None]
  - DIABETES MELLITUS [None]
  - LYMPHOCELE [None]
  - MYOCARDIAL ISCHAEMIA [None]
  - PERITONEAL HAEMORRHAGE [None]
